FAERS Safety Report 20884922 (Version 1)
Quarter: 2022Q2

REPORT INFORMATION
  Report Type: Spontaneous
  Country: US (occurrence: US)
  Receive Date: 20220527
  Receipt Date: 20220527
  Transmission Date: 20220721
  Serious: No
  Sender: FDA-Public Use
  Company Number: US-ESPERION THERAPEUTICS, INC-2022USA00957

PATIENT
  Age: 78 Year
  Sex: Female
  Weight: 60.317 kg

DRUGS (4)
  1. NEXLETOL [Suspect]
     Active Substance: BEMPEDOIC ACID
     Indication: Low density lipoprotein abnormal
     Dosage: 180 MILLIGRAM, QD
     Route: 048
     Dates: start: 20220428
  2. METOPROLOL [Concomitant]
     Active Substance: METOPROLOL
     Dosage: UNK
     Route: 048
  3. METFORMIN [Concomitant]
     Active Substance: METFORMIN HYDROCHLORIDE
     Dosage: UNK
     Route: 048
  4. TRADJENTA [Concomitant]
     Active Substance: LINAGLIPTIN
     Dosage: UNK

REACTIONS (1)
  - Blepharospasm [Not Recovered/Not Resolved]

NARRATIVE: CASE EVENT DATE: 20220501
